FAERS Safety Report 17704994 (Version 2)
Quarter: 2020Q3

REPORT INFORMATION
  Report Type: Spontaneous
  Country: CN (occurrence: CN)
  Receive Date: 20200424
  Receipt Date: 20200703
  Transmission Date: 20201102
  Serious: Yes (Other)
  Sender: FDA-Public Use
  Company Number: NVSC2020CN110126

PATIENT
  Age: 43 Year
  Sex: Male

DRUGS (1)
  1. AZOPT [Suspect]
     Active Substance: BRINZOLAMIDE
     Indication: PRODUCT USED FOR UNKNOWN INDICATION
     Dosage: UNK, BID (4 WEEKS)
     Route: 065

REACTIONS (3)
  - Vitreous haze [Recovered/Resolved]
  - Condition aggravated [Recovered/Resolved]
  - Ultrasound eye abnormal [Recovered/Resolved]
